FAERS Safety Report 16022008 (Version 1)
Quarter: 2019Q2

REPORT INFORMATION
  Report Type: Spontaneous
  Country: US (occurrence: US)
  Receive Date: 20190301
  Receipt Date: 20190301
  Transmission Date: 20190711
  Serious: Yes (Hospitalization, Other)
  Sender: FDA-Public Use
  Company Number: None

PATIENT
  Age: 80 Year
  Sex: Male

DRUGS (1)
  1. FORTEO [Suspect]
     Active Substance: TERIPARATIDE
     Indication: OSTEOPOROSIS
     Route: 058
     Dates: start: 20180212

REACTIONS (7)
  - Therapy cessation [None]
  - Blood sodium decreased [None]
  - Blood potassium increased [None]
  - Pelvic fracture [None]
  - Renal disorder [None]
  - Pneumonia [None]
  - Heart valve stenosis [None]

NARRATIVE: CASE EVENT DATE: 20190221
